FAERS Safety Report 5856569-3 (Version None)
Quarter: 2008Q3

REPORT INFORMATION
  Report Type: 
  Country: None (occurrence: None)
  Receive Date: 20080822
  Receipt Date: 20080822
  Transmission Date: 20090109
  Serious: Yes (Hospitalization)
  Sender: FDA-Public Use
  Company Number: None

PATIENT
  Sex: Female
  Weight: 63.5036 kg

DRUGS (1)
  1. DIGITEK - TAB 0.125MG - DISTRIBUTOR RIGHT SOURCE [Suspect]
     Indication: ATRIAL FIBRILLATION
     Dosage: 0.125MG 1 TAB DAILY ORAL 047
     Route: 048
     Dates: start: 20060101, end: 20080101

REACTIONS (10)
  - ABDOMINAL PAIN UPPER [None]
  - CONFUSIONAL STATE [None]
  - DIARRHOEA [None]
  - DIZZINESS [None]
  - DYSURIA [None]
  - FEELING ABNORMAL [None]
  - HYPOTENSION [None]
  - PHARMACEUTICAL PRODUCT COMPLAINT [None]
  - SYNCOPE [None]
  - VOMITING [None]
